FAERS Safety Report 13810666 (Version 1)
Quarter: 2017Q3

REPORT INFORMATION
  Report Type: Spontaneous
  Country: US (occurrence: US)
  Receive Date: 20170728
  Receipt Date: 20170728
  Transmission Date: 20171127
  Serious: No
  Sender: FDA-Public Use
  Company Number: US-AMGEN-USASP2017083972

PATIENT
  Age: 60 Year
  Sex: Female
  Weight: 68.48 kg

DRUGS (4)
  1. REPATHA [Suspect]
     Active Substance: EVOLOCUMAB
     Indication: BLOOD CHOLESTEROL INCREASED
     Dosage: 140 MG, Q2WK
     Route: 065
     Dates: start: 201604
  2. ENALAPRIL [Concomitant]
     Active Substance: ENALAPRIL
  3. GLIPIZIDE. [Concomitant]
     Active Substance: GLIPIZIDE
  4. INSULIN DEGLUDEC [Concomitant]
     Active Substance: INSULIN DEGLUDEC
     Dosage: UNK
     Dates: start: 201603

REACTIONS (2)
  - Injection site discolouration [Unknown]
  - Injection site pain [Unknown]

NARRATIVE: CASE EVENT DATE: 201704
